FAERS Safety Report 12724010 (Version 1)
Quarter: 2016Q3

REPORT INFORMATION
  Report Type: Spontaneous
  Country: US (occurrence: US)
  Receive Date: 20160904
  Receipt Date: 20160904
  Transmission Date: 20161109
  Serious: Yes (Disabling, Other)
  Sender: FDA-Public Use
  Company Number: None

PATIENT
  Age: 63 Year
  Sex: Female
  Weight: 76.5 kg

DRUGS (8)
  1. SIMVASTATIN TABLETS 10MCG LUPIN LIMITED [Suspect]
     Active Substance: SIMVASTATIN
     Indication: BLOOD CHOLESTEROL INCREASED
     Route: 048
     Dates: start: 20160816, end: 20160831
  2. FOLIC ACID. [Concomitant]
     Active Substance: FOLIC ACID
  3. EVENING PRIMROSE OIL [Concomitant]
     Active Substance: EVENING PRIMROSE OIL
  4. METFORMIN [Concomitant]
     Active Substance: METFORMIN HYDROCHLORIDE
  5. METHOTREXATE. [Concomitant]
     Active Substance: METHOTREXATE
  6. LEVOTHYROXIN [Concomitant]
     Active Substance: LEVOTHYROXINE
  7. VITAMIN D3 [Concomitant]
     Active Substance: CHOLECALCIFEROL
  8. CINNAMIN [Concomitant]

REACTIONS (8)
  - Arthralgia [None]
  - Headache [None]
  - Dyspnoea [None]
  - Rhinorrhoea [None]
  - Asthenia [None]
  - Abdominal pain upper [None]
  - Hyperhidrosis [None]
  - Pain [None]

NARRATIVE: CASE EVENT DATE: 20160901
